FAERS Safety Report 20712105 (Version 3)
Quarter: 2022Q2

REPORT INFORMATION
  Report Type: Report from Study
  Country: IL (occurrence: IL)
  Receive Date: 20220414
  Receipt Date: 20220606
  Transmission Date: 20220720
  Serious: Yes (Hospitalization)
  Sender: FDA-Public Use
  Company Number: IL-AMGEN-ISRCT2022065674

PATIENT
  Age: 63 Year
  Sex: Female
  Weight: 48.6 kg

DRUGS (7)
  1. AMG-510 [Suspect]
     Active Substance: AMG-510
     Indication: Non-small cell lung cancer stage IV
     Dosage: 960 MILLIGRAM
     Route: 048
     Dates: start: 20211122
  2. AMG-510 [Suspect]
     Active Substance: AMG-510
     Indication: K-ras gene mutation
  3. APIXABAN [Concomitant]
     Active Substance: APIXABAN
     Dosage: 2.5 MILLIGRAM
     Route: 048
     Dates: start: 20210408
  4. ACAMOL [NIMESULIDE] [Concomitant]
     Dosage: 500 MILLIGRAM
     Route: 048
     Dates: start: 20210317
  5. FOLIC ACID [Concomitant]
     Active Substance: FOLIC ACID
     Dosage: 400 MILLIGRAM
     Route: 048
     Dates: start: 20201231
  6. METAMIZOLE [Concomitant]
     Active Substance: METAMIZOLE
     Dosage: 33 GTT DROPS
     Route: 048
     Dates: start: 2020
  7. NALOXONE HYDROCHLORIDE\OXYCODONE HYDROCHLORIDE [Concomitant]
     Active Substance: NALOXONE HYDROCHLORIDE\OXYCODONE HYDROCHLORIDE
     Dosage: 5 MILLIGRAM
     Route: 048
     Dates: start: 20220123

REACTIONS (1)
  - Pleural effusion [Recovered/Resolved]

NARRATIVE: CASE EVENT DATE: 20220411
